FAERS Safety Report 6291726-6 (Version None)
Quarter: 2009Q3

REPORT INFORMATION
  Report Type: 
  Country: None (occurrence: None)
  Receive Date: 20090730
  Receipt Date: 20090724
  Transmission Date: 20100115
  Serious: Yes (Hospitalization)
  Sender: FDA-Public Use
  Company Number: PHHO2009US09268

PATIENT
  Sex: Male
  Weight: 85.9 kg

DRUGS (15)
  1. RAD 666 RAD+TAB+CMAS [Suspect]
     Indication: COLORECTAL CANCER METASTATIC
     Dosage: 5 MG, QD
     Route: 048
     Dates: start: 20080923
  2. BEVACIZUMAB [Suspect]
     Indication: COLORECTAL CANCER METASTATIC
     Dosage: 10 MG/KG Q 2 WKS
     Route: 048
     Dates: start: 20081016
  3. ASCORBIC ACID [Concomitant]
  4. M.V.I. [Concomitant]
  5. AVODART [Concomitant]
  6. PRAVASTATIN [Concomitant]
  7. VIAGRA [Concomitant]
  8. UROXATRAL [Concomitant]
  9. LOVENOX [Concomitant]
  10. IMODIUM [Concomitant]
  11. HYDROCODONE [Concomitant]
  12. OXYCODONE [Concomitant]
  13. AMLODIPINE [Concomitant]
  14. HYDROCHLOROTHIAZIDE [Concomitant]
  15. TYLENOL (CAPLET) [Concomitant]

REACTIONS (3)
  - ABDOMINAL ABSCESS [None]
  - ABDOMINAL PAIN [None]
  - ANASTOMOTIC LEAK [None]
